FAERS Safety Report 5690668-4 (Version None)
Quarter: 2008Q1

REPORT INFORMATION
  Report Type: 
  Country: None (occurrence: None)
  Receive Date: 20080331
  Receipt Date: 20080331
  Transmission Date: 20080703
  Serious: No
  Sender: FDA-Public Use
  Company Number: None

PATIENT
  Age: 44 Year
  Sex: Female

DRUGS (2)
  1. ULTRAM [Suspect]
     Indication: MENISCUS LESION
     Dosage: 1 TABLET ONCE DAILY PO
     Route: 048
     Dates: start: 20080316, end: 20080316
  2. ULTRAM ER [Suspect]
     Indication: MENISCUS LESION
     Dosage: 1 TABLET ONCE DAILY PO
     Route: 048
     Dates: start: 20080324, end: 20080324

REACTIONS (7)
  - ASTHENIA [None]
  - DIARRHOEA [None]
  - DIZZINESS [None]
  - FATIGUE [None]
  - HEADACHE [None]
  - MYALGIA [None]
  - NAUSEA [None]
